FAERS Safety Report 8813108 (Version 1)
Quarter: 2012Q4

REPORT INFORMATION
  Report Type: 
  Country: US (occurrence: US)
  Receive Date: 20120927
  Receipt Date: 20120927
  Transmission Date: 20130627
  Serious: No
  Sender: FDA-Public Use
  Company Number: US-AMGEN-USASP2012042369

PATIENT
  Sex: Female

DRUGS (7)
  1. PROLIA [Suspect]
     Indication: OSTEOPOROSIS POSTMENOPAUSAL
     Dosage: 60 mg, q6mo
     Dates: start: 20110922
  2. PREMARIN [Concomitant]
  3. TRILIPIX [Concomitant]
  4. LEVOXYL [Concomitant]
  5. VITAMIN D /00107901/ [Concomitant]
  6. ZYRTEC [Concomitant]
  7. CALCIUM [Concomitant]

REACTIONS (2)
  - Polymorphic light eruption [Not Recovered/Not Resolved]
  - Flushing [Not Recovered/Not Resolved]
